FAERS Safety Report 8474464-0 (Version None)
Quarter: 2012Q2

REPORT INFORMATION
  Report Type: 
  Country: None (occurrence: None)
  Receive Date: 20120628
  Receipt Date: 20120625
  Transmission Date: 20120825
  Serious: Yes (Hospitalization)
  Sender: FDA-Public Use
  Company Number: PHHY2012DE003865

PATIENT
  Sex: Male

DRUGS (2)
  1. EXTAVIA [Suspect]
     Indication: MULTIPLE SCLEROSIS
     Dosage: 1 ML, QOD
     Route: 058
     Dates: start: 20111228
  2. EXTAVIA [Suspect]
     Dosage: 0.75 ML, QOD
     Route: 058

REACTIONS (2)
  - MUSCLE SPASTICITY [None]
  - CYSTITIS NONINFECTIVE [None]
